FAERS Safety Report 6562822-0 (Version None)
Quarter: 2010Q1

REPORT INFORMATION
  Report Type: 
  Country: None (occurrence: None)
  Receive Date: 20100130
  Receipt Date: 20091228
  Transmission Date: 20100710
  Serious: No
  Sender: FDA-Public Use
  Company Number: US-ABBOTT-09P-163-0610651-00

PATIENT
  Sex: Female
  Weight: 68.1 kg

DRUGS (1)
  1. HUMIRA [Suspect]
     Indication: CROHN'S DISEASE
     Dates: start: 20091105

REACTIONS (8)
  - DIARRHOEA [None]
  - EYE IRRITATION [None]
  - HAEMATOCHEZIA [None]
  - HEADACHE [None]
  - OCULAR HYPERAEMIA [None]
  - ONYCHOMYCOSIS [None]
  - PYREXIA [None]
  - RASH [None]
